FAERS Safety Report 14665176 (Version 1)
Quarter: 2018Q1

REPORT INFORMATION
  Report Type: Spontaneous
  Country: US (occurrence: US)
  Receive Date: 20180320
  Receipt Date: 20180320
  Transmission Date: 20180509
  Serious: Yes (Other)
  Sender: FDA-Public Use
  Company Number: None

PATIENT
  Age: 22 Year
  Sex: Female

DRUGS (3)
  1. HUMIRA [Suspect]
     Active Substance: ADALIMUMAB
     Indication: CROHN^S DISEASE
     Dosage: ONE PEN EVERY 2 WEEKS SUBCUTANEOUS
     Route: 058
     Dates: start: 20151209
  2. MICROGESTIN [Concomitant]
     Active Substance: ETHINYL ESTRADIOL\NORETHINDRONE ACETATE
  3. TYLENOL [Concomitant]
     Active Substance: ACETAMINOPHEN

REACTIONS (7)
  - Depression [None]
  - Abdominal pain upper [None]
  - Influenza [None]
  - Fatigue [None]
  - Insurance issue [None]
  - Drug dose omission [None]
  - Hepatitis [None]

NARRATIVE: CASE EVENT DATE: 20180313
